FAERS Safety Report 25400992 (Version 1)
Quarter: 2025Q2

REPORT INFORMATION
  Report Type: Spontaneous
  Country: US (occurrence: US)
  Receive Date: 20250605
  Receipt Date: 20250605
  Transmission Date: 20250716
  Serious: Yes (Other)
  Sender: VIIV
  Company Number: US-VIIV HEALTHCARE-US2025070261

PATIENT

DRUGS (4)
  1. TRIUMEQ [Suspect]
     Active Substance: ABACAVIR SULFATE\DOLUTEGRAVIR SODIUM\LAMIVUDINE
     Indication: HIV infection
     Route: 048
     Dates: start: 202001
  2. FLUTICASONE PROPIONATE [Concomitant]
     Active Substance: FLUTICASONE PROPIONATE
     Indication: Product used for unknown indication
     Dosage: 2 PUFF(S), BID (1 SPRAY IN EACH NOSTRIL TWICE A DAY) 50 MCG/ACT SUSPENSION
  3. ALBUTEROL\BUDESONIDE [Concomitant]
     Active Substance: ALBUTEROL\BUDESONIDE
     Indication: Product used for unknown indication
  4. ASPIRIN [Concomitant]
     Active Substance: ASPIRIN
     Indication: Coronary artery disease

REACTIONS (21)
  - Diabetes mellitus [Not Recovered/Not Resolved]
  - Barrett^s oesophagus [Unknown]
  - Haemorrhage urinary tract [Unknown]
  - Venous arterialisation [Unknown]
  - Synovial cyst [Unknown]
  - Vocal cord polyp [Unknown]
  - Benign prostatic hyperplasia [Not Recovered/Not Resolved]
  - Umbilical hernia [Unknown]
  - Inguinal hernia [Unknown]
  - Essential hypertension [Not Recovered/Not Resolved]
  - Hyperlipidaemia [Not Recovered/Not Resolved]
  - Cardiovascular disorder [Not Recovered/Not Resolved]
  - Benign laryngeal neoplasm [Unknown]
  - Palpitations [Unknown]
  - Gastrooesophageal reflux disease [Unknown]
  - Pain in extremity [Unknown]
  - Haematuria [Unknown]
  - Blood cholesterol increased [Unknown]
  - Limb injury [Unknown]
  - Blood urine present [Unknown]
  - Heart sounds abnormal [Unknown]

NARRATIVE: CASE EVENT DATE: 20200101
